FAERS Safety Report 21311918 (Version 1)
Quarter: 2022Q3

REPORT INFORMATION
  Report Type: Spontaneous
  Country: US (occurrence: None)
  Receive Date: 20220908
  Receipt Date: 20220908
  Transmission Date: 20221026
  Serious: Yes (Hospitalization, Disabling)
  Sender: FDA-Public Use
  Company Number: None

PATIENT
  Age: 23 Year
  Sex: Female
  Weight: 67.05 kg

DRUGS (1)
  1. .DELTA.8-TETRAHYDROCANNABINOL\HERBALS [Suspect]
     Active Substance: .DELTA.8-TETRAHYDROCANNABINOL\HERBALS

REACTIONS (7)
  - Dizziness [None]
  - Choking sensation [None]
  - Dry mouth [None]
  - Paraesthesia [None]
  - Confusional state [None]
  - Amnesia [None]
  - Asthenia [None]

NARRATIVE: CASE EVENT DATE: 20220904
